FAERS Safety Report 7453772-6 (Version None)
Quarter: 2011Q2

REPORT INFORMATION
  Report Type: 
  Country: None (occurrence: None)
  Receive Date: 20110502
  Receipt Date: 20110217
  Transmission Date: 20111010
  Serious: No
  Sender: FDA-Public Use
  Company Number: US-ASTRAZENECA-2011SE03669

PATIENT

DRUGS (3)
  1. NEXIUM [Suspect]
     Route: 048
  2. PLAQUENIAL [Concomitant]
  3. LIPITOR [Concomitant]

REACTIONS (2)
  - GENERAL PHYSICAL HEALTH DETERIORATION [None]
  - SYSTEMIC LUPUS ERYTHEMATOSUS [None]
